FAERS Safety Report 8397520-4 (Version None)
Quarter: 2012Q2

REPORT INFORMATION
  Report Type: 
  Country: None (occurrence: None)
  Receive Date: 20120529
  Receipt Date: 20120529
  Transmission Date: 20120825
  Serious: Yes (Hospitalization)
  Sender: FDA-Public Use
  Company Number: None

PATIENT
  Sex: Male
  Weight: 76.83 kg

DRUGS (4)
  1. LISINOPRIL [Concomitant]
  2. CASODEX [Suspect]
     Dosage: 1500 MG
  3. TAMSULOSIN HCL [Concomitant]
  4. TRIPTORELIN PAMOATE [Suspect]
     Dosage: 22.5 MG

REACTIONS (1)
  - CHEST DISCOMFORT [None]
